FAERS Safety Report 9132807 (Version 1)
Quarter: 2013Q1

REPORT INFORMATION
  Report Type: Report from Study
  Country: DE (occurrence: DE)
  Receive Date: 20130301
  Receipt Date: 20130301
  Transmission Date: 20140127
  Serious: Yes (Hospitalization)
  Sender: FDA-Public Use
  Company Number: DE-ABBOTT-13P-062-1054846-00

PATIENT
  Age: 48 Year
  Sex: Female
  Weight: 110 kg

DRUGS (11)
  1. HUMIRA [Suspect]
     Indication: RHEUMATOID ARTHRITIS
     Route: 058
     Dates: start: 20090324
  2. NON STEROIDAL ANTIRHEUMATIC DRUG [Concomitant]
     Indication: RHEUMATOID ARTHRITIS
  3. PREDNISOLONE [Concomitant]
     Indication: RHEUMATOID ARTHRITIS
  4. SALOFALK [Concomitant]
     Indication: INFLAMMATORY BOWEL DISEASE
  5. ACTONEL [Concomitant]
     Indication: OSTEOPOROSIS
  6. STANGYL [Concomitant]
     Indication: MENTAL DISORDER
  7. LYRICA [Concomitant]
     Indication: PRODUCT USED FOR UNKNOWN INDICATION
  8. VENLAFAXIN [Concomitant]
     Indication: PRODUCT USED FOR UNKNOWN INDICATION
     Dosage: 225 MG DAILY
  9. ZELDOX [Concomitant]
     Indication: PRODUCT USED FOR UNKNOWN INDICATION
  10. NEMEXIN [Concomitant]
     Indication: PRODUCT USED FOR UNKNOWN INDICATION
  11. ANTELEPSIN [Concomitant]
     Indication: PRODUCT USED FOR UNKNOWN INDICATION

REACTIONS (1)
  - Lower limb fracture [Not Recovered/Not Resolved]
